FAERS Safety Report 16892579 (Version 3)
Quarter: 2019Q4

REPORT INFORMATION
  Report Type: Spontaneous
  Country: JP (occurrence: JP)
  Receive Date: 20191007
  Receipt Date: 20191212
  Transmission Date: 20200122
  Serious: Yes (Death, Hospitalization)
  Sender: FDA-Public Use
  Company Number: JP-ELI_LILLY_AND_COMPANY-JP201906003650

PATIENT
  Age: 74 Year

DRUGS (4)
  1. CARBOPLATIN. [Concomitant]
     Active Substance: CARBOPLATIN
     Indication: COLON CANCER
     Dosage: 158 MG, UNKNOWN
     Route: 041
     Dates: start: 20190520, end: 20190527
  2. ERBITUX [Suspect]
     Active Substance: CETUXIMAB
     Indication: COLON CANCER
     Dosage: 633 MG, UNKNOWN
     Route: 041
     Dates: start: 20190520, end: 20190520
  3. PACLITAXEL. [Concomitant]
     Active Substance: PACLITAXEL
     Indication: COLON CANCER
     Dosage: 232 MG, UNKNOWN
     Route: 041
     Dates: start: 20190520, end: 20190527
  4. ERBITUX [Suspect]
     Active Substance: CETUXIMAB
     Dosage: 396 MG, WEEKLY (1/W)
     Route: 041
     Dates: start: 201905

REACTIONS (4)
  - Off label use [Unknown]
  - Pneumonia bacterial [Fatal]
  - White blood cell count decreased [Fatal]
  - Malignant neoplasm progression [Fatal]

NARRATIVE: CASE EVENT DATE: 20190529
